FAERS Safety Report 24894907 (Version 1)
Quarter: 2025Q1

REPORT INFORMATION
  Report Type: Spontaneous
  Country: JP (occurrence: JP)
  Receive Date: 20250128
  Receipt Date: 20250128
  Transmission Date: 20250408
  Serious: Yes (Other)
  Sender: PFIZER
  Company Number: JP-PFIZER INC-PV202500009698

PATIENT
  Age: 9 Decade

DRUGS (2)
  1. IBRANCE [Suspect]
     Active Substance: PALBOCICLIB
     Indication: Breast cancer
     Dosage: 75 MG, DAILY, FOR 3 WEEKS FOLLOWED BY 2 WEEKS OF REST
     Dates: start: 2024
  2. LETROZOLE [Concomitant]
     Active Substance: LETROZOLE
     Indication: Breast cancer
     Dates: start: 2024

REACTIONS (2)
  - Liver disorder [Not Recovered/Not Resolved]
  - Hepatitis B virus test positive [Unknown]

NARRATIVE: CASE EVENT DATE: 20241201
